FAERS Safety Report 5609150-5 (Version None)
Quarter: 2008Q1

REPORT INFORMATION
  Report Type: 
  Country: None (occurrence: None)
  Receive Date: 20080130
  Receipt Date: 20080130
  Transmission Date: 20080703
  Serious: Yes (Death)
  Sender: FDA-Public Use
  Company Number: None

PATIENT
  Age: 29 Year
  Sex: Female

DRUGS (7)
  1. WARFARIN SODIUM [Suspect]
     Indication: PULMONARY EMBOLISM
     Dosage: 10MG DAILY
  2. LOVENOX [Suspect]
     Indication: PULMONARY EMBOLISM
     Dosage: 70MG SQ Q12
  3. HYDROCODONE BITARTRATE [Concomitant]
  4. PREDNISONE TAB [Concomitant]
  5. ENALAPRIL MALEATE [Concomitant]
  6. POTASSIUM CHLORIDE [Concomitant]
  7. HYDROXYCHLOROQUINE [Concomitant]

REACTIONS (4)
  - BRAIN DEATH [None]
  - BRAIN HERNIATION [None]
  - HAEMORRHAGE INTRACRANIAL [None]
  - PULMONARY EMBOLISM [None]
